FAERS Safety Report 8910889 (Version 1)
Quarter: 2012Q4

REPORT INFORMATION
  Report Type: 
  Country: CH (occurrence: CH)
  Receive Date: 20121115
  Receipt Date: 20121115
  Transmission Date: 20130627
  Serious: Yes (Other)
  Sender: FDA-Public Use
  Company Number: CH-ABBOTT-12P-151-0995317-00

PATIENT
  Sex: Female
  Weight: 55 kg

DRUGS (3)
  1. CIPRALEX [Suspect]
     Indication: MAJOR DEPRESSION
     Dosage: 5 mg
     Route: 048
     Dates: start: 20120903
  2. CIPRALEX [Suspect]
     Route: 048
  3. TRITTICO [Concomitant]
     Indication: SLEEP DISORDER
     Route: 048

REACTIONS (10)
  - Suicidal ideation [Unknown]
  - Agitation [Recovered/Resolved]
  - Hyperhidrosis [Recovered/Resolved]
  - Palpitations [Recovered/Resolved]
  - Muscular weakness [Recovered/Resolved]
  - Nausea [Recovered/Resolved]
  - Tremor [Recovered/Resolved]
  - Chest discomfort [Recovered/Resolved]
  - Panic reaction [None]
  - Sleep disorder [None]
